FAERS Safety Report 6827414-4 (Version None)
Quarter: 2010Q3

REPORT INFORMATION
  Report Type: 
  Country: None (occurrence: None)
  Receive Date: 20100709
  Receipt Date: 20070115
  Transmission Date: 20110219
  Serious: No
  Sender: FDA-Public Use
  Company Number: US-PFIZER INC-2007004859

PATIENT
  Sex: Female
  Weight: 88.9 kg

DRUGS (18)
  1. CHANTIX [Suspect]
     Indication: SMOKING CESSATION THERAPY
     Route: 048
     Dates: start: 20070106, end: 20070111
  2. PLAVIX [Concomitant]
  3. LEXAPRO [Concomitant]
  4. ALPRAZOLAM [Concomitant]
  5. LASIX [Concomitant]
  6. POTASSIUM [Concomitant]
  7. PREVACID [Concomitant]
  8. PROVIGIL [Concomitant]
  9. PRIMIDONE [Concomitant]
  10. EFFEXOR [Concomitant]
  11. ALLERGY MEDICATION [Concomitant]
  12. LEVOTHYROXINE SODIUM [Concomitant]
  13. VALSARTAN [Concomitant]
  14. POLYSACCHARIDE-IRON COMPLEX [Concomitant]
  15. ACETYLSALICYLIC ACID [Concomitant]
  16. MULTI-VITAMINS [Concomitant]
  17. OTHER RESPIRATORY SYSTEM PRODUCTS [Concomitant]
  18. KEPPRA [Concomitant]

REACTIONS (2)
  - ABNORMAL DREAMS [None]
  - FLATULENCE [None]
